FAERS Safety Report 4293040-7 (Version None)
Quarter: 2004Q1

REPORT INFORMATION
  Report Type: 
  Country: None (occurrence: None)
  Receive Date: 20040210
  Receipt Date: 20040129
  Transmission Date: 20041129
  Serious: Yes (Death, Hospitalization)
  Sender: FDA-Public Use
  Company Number: 062-20785-04010249

PATIENT
  Age: 78 Year
  Sex: Male

DRUGS (7)
  1. THALIDOMIDE (THALIDOMIDE) (CAPSULES) [Suspect]
     Indication: MULTIPLE MYELOMA
     Dosage: 50 MG, DAILY, ORAL; SEE IMAGE
     Route: 048
     Dates: start: 20031205, end: 20030101
  2. THALIDOMIDE (THALIDOMIDE) (CAPSULES) [Suspect]
     Indication: MULTIPLE MYELOMA
     Dosage: 50 MG, DAILY, ORAL; SEE IMAGE
     Route: 048
     Dates: start: 20031219, end: 20031219
  3. THALIDOMIDE (THALIDOMIDE) (CAPSULES) [Suspect]
     Indication: MULTIPLE MYELOMA
     Dosage: 50 MG, DAILY, ORAL; SEE IMAGE
     Route: 048
     Dates: start: 20040103, end: 20040103
  4. METOPROLOL SUCCINATE [Concomitant]
  5. LEVOTHYROXINE SODIUM [Concomitant]
  6. ENALAPRIL MALEATE [Concomitant]
  7. AMLODIPINE [Concomitant]

REACTIONS (5)
  - BRONCHITIS [None]
  - CHILLS [None]
  - MALIGNANT NEOPLASM PROGRESSION [None]
  - MULTIPLE MYELOMA [None]
  - PYREXIA [None]
